FAERS Safety Report 9419142 (Version 1)
Quarter: 2013Q3

REPORT INFORMATION
  Report Type: Spontaneous
  Country: None (occurrence: US)
  Receive Date: 20130725
  Receipt Date: 20130725
  Transmission Date: 20140515
  Serious: No
  Sender: FDA-Public Use
  Company Number: US-TEVA-421185USA

PATIENT
  Sex: Female

DRUGS (1)
  1. QVAR [Suspect]

REACTIONS (1)
  - Dyspnoea [Not Recovered/Not Resolved]
